FAERS Safety Report 4975390-1 (Version None)
Quarter: 2006Q2

REPORT INFORMATION
  Report Type: 
  Country: None (occurrence: None)
  Receive Date: 20060418
  Receipt Date: 20060227
  Transmission Date: 20061013
  Serious: No
  Sender: FDA-Public Use
  Company Number: BE-MERCK-0603BEL00001

PATIENT
  Sex: Female

DRUGS (2)
  1. SINGULAIR [Suspect]
     Indication: ASTHMA
     Route: 048
  2. ZAFIRLUKAST [Concomitant]
     Indication: ASTHMA
     Route: 048

REACTIONS (1)
  - EOSINOPHIL COUNT INCREASED [None]
